FAERS Safety Report 22605464 (Version 1)
Quarter: 2023Q2

REPORT INFORMATION
  Report Type: Spontaneous
  Country: CH (occurrence: CH)
  Receive Date: 20230615
  Receipt Date: 20230615
  Transmission Date: 20230721
  Serious: Yes (Other)
  Sender: FDA-Public Use
  Company Number: CH-BAYER-2023A079848

PATIENT
  Age: 29 Year
  Sex: Female

DRUGS (1)
  1. PRAZIQUANTEL [Suspect]
     Active Substance: PRAZIQUANTEL
     Indication: Echinococciasis

REACTIONS (3)
  - Angina pectoris [None]
  - Off label use [None]
  - Vomiting [None]
